FAERS Safety Report 4988487-7 (Version None)
Quarter: 2006Q2

REPORT INFORMATION
  Report Type: 
  Country: None (occurrence: None)
  Receive Date: 20060426
  Receipt Date: 20060411
  Transmission Date: 20061013
  Serious: No
  Sender: FDA-Public Use
  Company Number: US200604001993

PATIENT
  Age: 46 Year
  Sex: Male

DRUGS (6)
  1. CYMBALTA [Suspect]
     Indication: DEPRESSION
  2. SEROQUEL [Concomitant]
  3. BUSPAR /AUS/ (BUSPIRONE HYDROCHLORIDE) [Concomitant]
  4. FLEXERIL [Concomitant]
  5. XANAX /USA/ (ALPRAZOLAM) [Concomitant]
  6. LISINOPRIL [Concomitant]

REACTIONS (6)
  - ALANINE AMINOTRANSFERASE INCREASED [None]
  - BLOOD AMYLASE DECREASED [None]
  - BLOOD CHOLESTEROL INCREASED [None]
  - BLOOD TRIGLYCERIDES INCREASED [None]
  - GAMMA-GLUTAMYLTRANSFERASE INCREASED [None]
  - LIPASE INCREASED [None]
